FAERS Safety Report 24816417 (Version 2)
Quarter: 2025Q1

REPORT INFORMATION
  Report Type: Spontaneous
  Country: US (occurrence: US)
  Receive Date: 20250107
  Receipt Date: 20250113
  Transmission Date: 20250408
  Serious: Yes (Life-Threatening, Hospitalization)
  Sender: PFIZER
  Company Number: US-PFIZER INC-202500001103

PATIENT
  Age: 78 Year
  Sex: Male
  Weight: 70.295 kg

DRUGS (6)
  1. VYNDAMAX [Suspect]
     Active Substance: TAFAMIDIS
     Indication: Amyloidosis
     Dosage: 61MG, ONE CAPSULE BY MOUTH, EVERY MORNING
     Route: 048
     Dates: start: 2021
  2. ELIQUIS [Suspect]
     Active Substance: APIXABAN
     Indication: Atrial fibrillation
     Dosage: 5 MG, 2X/DAY
     Dates: start: 2016
  3. SPIRONOLACTONE [Concomitant]
     Active Substance: SPIRONOLACTONE
     Dosage: 25 MG, DAILY
  4. VITAMIN D NOS [Concomitant]
     Active Substance: CHOLECALCIFEROL\ERGOCALCIFEROL
     Dosage: 1 TABLET DAILY
  5. TORSEMIDE [Concomitant]
     Active Substance: TORSEMIDE
     Dosage: BASED ON WEIGHT, 1 DAY MIGHT BE 2 PILLS, OR 3 PILLS, ALTERNATES, 10MG PILLS
  6. TIKOSYN [Concomitant]
     Active Substance: DOFETILIDE
     Dosage: 125MG TWICE DAILY

REACTIONS (2)
  - Cerebrovascular accident [Unknown]
  - Thrombosis [Unknown]

NARRATIVE: CASE EVENT DATE: 20240227
